FAERS Safety Report 17895767 (Version 1)
Quarter: 2020Q2

REPORT INFORMATION
  Report Type: Spontaneous
  Country: US (occurrence: US)
  Receive Date: 20200615
  Receipt Date: 20200615
  Transmission Date: 20200714
  Serious: Yes (Other)
  Sender: FDA-Public Use
  Company Number: US-PFIZER INC-2016328494

PATIENT
  Age: 55 Year
  Sex: Male

DRUGS (4)
  1. LYRICA [Suspect]
     Active Substance: PREGABALIN
     Indication: SYSTEMIC LUPUS ERYTHEMATOSUS
     Dosage: 150 MG, 3X/DAY, (1 CAPSULE 3 TIMES A DAY)
     Route: 048
  2. LYRICA [Suspect]
     Active Substance: PREGABALIN
     Indication: FIBROMYALGIA
     Dosage: 150 MG, 3X/DAY, (1 CAPSULE 3 TIMES A DAY)
     Route: 048
     Dates: start: 20161104
  3. LYRICA [Suspect]
     Active Substance: PREGABALIN
     Dosage: 150 MG, 3X/DAY, (1-CAPSULE BY MOUTH THREE TIMES DAILY)
     Route: 048
  4. LYRICA [Suspect]
     Active Substance: PREGABALIN
     Indication: NECK PAIN
     Dosage: 150 MG, 3X/DAY, (1 CAPSULE 3 TIMES A DAY)
     Route: 048
     Dates: start: 20160520, end: 2016

REACTIONS (1)
  - Bladder cancer [Unknown]
